FAERS Safety Report 9771372 (Version 1)
Quarter: 2013Q4

REPORT INFORMATION
  Report Type: Spontaneous
  Country: US (occurrence: US)
  Receive Date: 20131218
  Receipt Date: 20131218
  Transmission Date: 20140711
  Serious: Yes (Other)
  Sender: FDA-Public Use
  Company Number: US-ROXANE LABORATORIES, INC.-2013-RO-01956RO

PATIENT
  Age: 23 Year
  Sex: Female
  Weight: 77 kg

DRUGS (7)
  1. MYCOPHENOLATE MOFETIL [Suspect]
     Indication: RENAL TRANSPLANT
     Dosage: 1000 MG
     Route: 048
     Dates: start: 20120406, end: 20131205
  2. CYCLOSPORINE [Concomitant]
     Indication: RENAL TRANSPLANT
     Dosage: 250 MG
     Route: 048
     Dates: start: 20120406
  3. CORTICOSTEROIDS [Concomitant]
     Indication: RENAL TRANSPLANT
     Dosage: 10 MG
     Route: 048
     Dates: start: 20120406
  4. LABETALOL [Concomitant]
     Dosage: 200 MG
     Route: 048
  5. AMLODIPINE [Concomitant]
     Dosage: 5 MG
     Route: 048
  6. ASPIRIN [Concomitant]
     Indication: PROPHYLAXIS
     Dosage: 81 MG
     Route: 048
  7. VITAMIN D [Concomitant]
     Dosage: 1000 MG
     Route: 048

REACTIONS (1)
  - Abortion spontaneous [Unknown]
